FAERS Safety Report 9616559 (Version 1)
Quarter: 2013Q4

REPORT INFORMATION
  Report Type: Spontaneous
  Country: US (occurrence: US)
  Receive Date: 20131011
  Receipt Date: 20131011
  Transmission Date: 20140711
  Serious: Yes (Hospitalization, Other)
  Sender: FDA-Public Use
  Company Number: US-BAXTER-2013BAX018362

PATIENT
  Sex: Male

DRUGS (4)
  1. DIANEAL LOW CALCIUM [Suspect]
     Indication: PERITONEAL DIALYSIS
     Route: 033
     Dates: end: 20130401
  2. DIANEAL LOW CALCIUM [Suspect]
     Route: 033
     Dates: start: 20130508
  3. DIANEAL LOW CALCIUM [Suspect]
     Indication: PERITONEAL DIALYSIS
     Route: 033
     Dates: end: 20130401
  4. DIANEAL LOW CALCIUM [Suspect]
     Route: 033
     Dates: start: 20130508

REACTIONS (2)
  - Catheter site infection [Recovering/Resolving]
  - Peritonitis [Recovering/Resolving]
